FAERS Safety Report 5730689-6 (Version None)
Quarter: 2008Q2

REPORT INFORMATION
  Report Type: 
  Country: None (occurrence: None)
  Receive Date: 20080505
  Receipt Date: 20080505
  Transmission Date: 20081010
  Serious: Yes (Other)
  Sender: FDA-Public Use
  Company Number: None

PATIENT
  Age: 61 Year
  Sex: Male
  Weight: 90.7194 kg

DRUGS (2)
  1. RITUXAN [Suspect]
     Dosage: 125 BAG 125 BAG-DAY-4HRS- IV DRIP
     Route: 041
  2. SIMVASTATIN [Suspect]
     Dosage: 20 MG 1 DAILY PO
     Route: 048

REACTIONS (3)
  - DRUG INTERACTION [None]
  - NEUROPATHY PERIPHERAL [None]
  - SENSORY LOSS [None]
